FAERS Safety Report 4349208-4 (Version None)
Quarter: 2004Q2

REPORT INFORMATION
  Report Type: 
  Country: None (occurrence: None)
  Receive Date: 20040428
  Receipt Date: 20040421
  Transmission Date: 20050107
  Serious: Yes (Hospitalization)
  Sender: FDA-Public Use
  Company Number: NL-ROCHE-365067

PATIENT
  Age: 75 Year
  Sex: Female

DRUGS (3)
  1. NEOTIGASON [Suspect]
     Indication: PSORIASIS
     Dosage: DOSE REPORTED AS 1DD1
     Route: 048
     Dates: start: 20030615, end: 20031218
  2. NEOTIGASON [Suspect]
     Dosage: DOSE REPORTED AS 1DD1
     Route: 048
  3. KLACID [Suspect]
     Indication: BREAST DISORDER
     Dosage: DOSE REPORTED AS 1DD1
     Route: 048
     Dates: start: 20031215, end: 20031218

REACTIONS (3)
  - CAPILLARY LEAK SYNDROME [None]
  - OEDEMA PERIPHERAL [None]
  - RASH PUSTULAR [None]
